FAERS Safety Report 10641168 (Version 1)
Quarter: 2014Q4

REPORT INFORMATION
  Report Type: Spontaneous
  Country: US (occurrence: None)
  Receive Date: 20141208
  Receipt Date: 20141208
  Transmission Date: 20150529
  Serious: Yes (Hospitalization)
  Sender: FDA-Public Use
  Company Number: PD-197

PATIENT
  Age: 56 Year
  Sex: Female

DRUGS (1)
  1. HYDROCODONE/ACETAMINOPHEN [Suspect]
     Active Substance: ACETAMINOPHEN\HYDROCODONE
     Indication: PAIN IN EXTREMITY
     Dosage: ONE DOSE

REACTIONS (8)
  - Nausea [None]
  - Retching [None]
  - Sinus bradycardia [None]
  - Dizziness [None]
  - Hyperhidrosis [None]
  - Asthenia [None]
  - Presyncope [None]
  - Ventricular asystole [None]

NARRATIVE: CASE EVENT DATE: 2014
